FAERS Safety Report 10089031 (Version 1)
Quarter: 2014Q2

REPORT INFORMATION
  Report Type: Report from Study
  Country: US (occurrence: US)
  Receive Date: 20140421
  Receipt Date: 20140421
  Transmission Date: 20141212
  Serious: Yes (Other)
  Sender: FDA-Public Use
  Company Number: US-ROCHE-1387432

PATIENT
  Age: 64 Year
  Sex: Male

DRUGS (1)
  1. INTERFERON ALFA-2A [Suspect]
     Indication: HEPATITIS C
     Dosage: 3 MILLION UNITS (MU)
     Route: 058

REACTIONS (1)
  - Focal segmental glomerulosclerosis [Recovering/Resolving]
